FAERS Safety Report 4978444-9 (Version None)
Quarter: 2006Q2

REPORT INFORMATION
  Report Type: 
  Country: None (occurrence: None)
  Receive Date: 20060420
  Receipt Date: 20060418
  Transmission Date: 20061013
  Serious: Yes (Life-Threatening, Hospitalization)
  Sender: FDA-Public Use
  Company Number: FR-BOEHRINGER INGELHEIM PHARMACEUTICALS, INC.-2006-DE-01963GD

PATIENT
  Age: 55 Year
  Sex: Male

DRUGS (6)
  1. NEVIRAPINE [Suspect]
     Indication: HIV INFECTION
  2. ZIDOVUDINE [Suspect]
     Indication: HIV INFECTION
  3. LAMIVUDINE [Suspect]
     Indication: HIV INFECTION
  4. ABACAVIR [Suspect]
     Indication: HIV INFECTION
  5. RITONAVIR/LOPINAVIR [Suspect]
     Indication: HIV INFECTION
  6. VINBLASTINE SULFATE [Suspect]
     Indication: CASTLEMAN'S DISEASE
     Route: 042

REACTIONS (24)
  - ACUTE PRERENAL FAILURE [None]
  - BONE MARROW FAILURE [None]
  - C-REACTIVE PROTEIN INCREASED [None]
  - CASTLEMAN'S DISEASE [None]
  - CONSTIPATION [None]
  - DISEASE RECURRENCE [None]
  - DRUG INTERACTION [None]
  - ESCHERICHIA SEPSIS [None]
  - FATIGUE [None]
  - FEBRILE BONE MARROW APLASIA [None]
  - GENERAL PHYSICAL HEALTH DETERIORATION [None]
  - HERPES VIRUS INFECTION [None]
  - HYPOAESTHESIA [None]
  - LYMPHADENOPATHY [None]
  - NEUROPATHY PERIPHERAL [None]
  - NEUTROPENIA [None]
  - PANCYTOPENIA [None]
  - PYREXIA [None]
  - RENAL FAILURE [None]
  - SEPTIC SHOCK [None]
  - SERUM FERRITIN INCREASED [None]
  - SPLENOMEGALY [None]
  - TACHYCARDIA [None]
  - THROMBOCYTOPENIA [None]
